FAERS Safety Report 9804667 (Version 1)
Quarter: 2014Q1

REPORT INFORMATION
  Report Type: Spontaneous
  Country: US (occurrence: US)
  Receive Date: 20140108
  Receipt Date: 20140108
  Transmission Date: 20141002
  Serious: Yes (Other)
  Sender: FDA-Public Use
  Company Number: CHPA2014US000553

PATIENT
  Sex: Female

DRUGS (1)
  1. THRIVE GUM UNKNOWN [Suspect]
     Route: 048

REACTIONS (1)
  - Drug dependence [Unknown]
